FAERS Safety Report 15800585 (Version 1)
Quarter: 2019Q1

REPORT INFORMATION
  Report Type: Spontaneous
  Country: US (occurrence: US)
  Receive Date: 20190108
  Receipt Date: 20190108
  Transmission Date: 20190417
  Serious: No
  Sender: FDA-Public Use
  Company Number: US-009507513-1901USA000645

PATIENT
  Age: 22 Year
  Sex: Female
  Weight: 70.3 kg

DRUGS (3)
  1. TYLENOL [Concomitant]
     Active Substance: ACETAMINOPHEN
     Dosage: UNK
  2. NEXPLANON [Suspect]
     Active Substance: ETONOGESTREL
     Indication: CONTRACEPTION
     Dosage: 1 DOSAGE FORM, LEFT ARM, 3 YEARS
     Route: 059
     Dates: start: 20141104
  3. IBUPROFEN. [Concomitant]
     Active Substance: IBUPROFEN
     Dosage: UNK

REACTIONS (13)
  - Eczema asteatotic [Not Recovered/Not Resolved]
  - Asthenia [Not Recovered/Not Resolved]
  - Nausea [Not Recovered/Not Resolved]
  - Depression [Not Recovered/Not Resolved]
  - Uterine cyst [Not Recovered/Not Resolved]
  - Dizziness [Not Recovered/Not Resolved]
  - Implant site bruising [Not Recovered/Not Resolved]
  - Weight increased [Not Recovered/Not Resolved]
  - Incorrect product administration duration [Unknown]
  - Amenorrhoea [Not Recovered/Not Resolved]
  - Abdominal pain upper [Not Recovered/Not Resolved]
  - Rash generalised [Not Recovered/Not Resolved]
  - Implant site pain [Not Recovered/Not Resolved]

NARRATIVE: CASE EVENT DATE: 201504
